FAERS Safety Report 4337057-2 (Version None)
Quarter: 2004Q1

REPORT INFORMATION
  Report Type: 
  Country: None (occurrence: None)
  Receive Date: 20040329
  Receipt Date: 20040203
  Transmission Date: 20041129
  Serious: No
  Sender: FDA-Public Use
  Company Number: USA040258455

PATIENT
  Age: 10 Year
  Sex: Male
  Weight: 48 kg

DRUGS (1)
  1. STRATTERA [Suspect]
     Indication: ATTENTION DEFICIT/HYPERACTIVITY DISORDER
     Dosage: 40 MG/2 DAY
     Dates: start: 20031001

REACTIONS (5)
  - AGGRESSION [None]
  - ANGER [None]
  - DRUG INEFFECTIVE [None]
  - PARANOIA [None]
  - PRESCRIBED OVERDOSE [None]
